FAERS Safety Report 21775622 (Version 1)
Quarter: 2022Q4

REPORT INFORMATION
  Report Type: Report from Study
  Country: US (occurrence: US)
  Receive Date: 20221226
  Receipt Date: 20221226
  Transmission Date: 20230113
  Serious: Yes (Death, Other)
  Sender: FDA-Public Use
  Company Number: US-ACADIA PHARMACEUTICALS INC.-ACA-2022-PIM-004411

PATIENT
  Age: 84 Year
  Sex: Male

DRUGS (9)
  1. NUPLAZID [Suspect]
     Active Substance: PIMAVANSERIN TARTRATE
     Indication: Parkinson^s disease
     Dosage: 34 MILLIGRAM, QD
     Route: 048
     Dates: start: 202005
  2. SILDENAFIL CITRATE [Concomitant]
     Active Substance: SILDENAFIL CITRATE
  3. LEVOTHYROXINE [Concomitant]
     Active Substance: LEVOTHYROXINE
  4. SEROQUEL [Concomitant]
     Active Substance: QUETIAPINE FUMARATE
  5. MINERALS\VITAMINS [Concomitant]
     Active Substance: MINERALS\VITAMINS
     Dosage: SOFTGEL
  6. CARBIDOPA [Concomitant]
     Active Substance: CARBIDOPA
  7. RIVASTIGMINE [Concomitant]
     Active Substance: RIVASTIGMINE
  8. ALPRAZOLAM [Concomitant]
     Active Substance: ALPRAZOLAM
  9. LATANOPROST [Concomitant]
     Active Substance: LATANOPROST
     Dosage: 0.005%

REACTIONS (1)
  - Death [Fatal]

NARRATIVE: CASE EVENT DATE: 20221103
